FAERS Safety Report 5000662-4 (Version None)
Quarter: 2006Q2

REPORT INFORMATION
  Report Type: 
  Country: None (occurrence: None)
  Receive Date: 20060501
  Receipt Date: 20060418
  Transmission Date: 20061013
  Serious: Yes (Other)
  Sender: FDA-Public Use
  Company Number: 2006053800

PATIENT
  Age: 54 Year
  Sex: Male
  Weight: 88.4514 kg

DRUGS (6)
  1. GENOTROPIN [Suspect]
     Indication: HYPOPITUITARISM
     Dosage: 4 UNITS (DAILY),
     Dates: start: 20010801, end: 20050516
  2. TESTOSTERONE [Concomitant]
  3. THYROID TAB [Concomitant]
  4. THEOPHYLLINE [Concomitant]
  5. LISINOPRIL [Concomitant]
  6. CORTISONE ACETATE [Concomitant]

REACTIONS (3)
  - DRY MOUTH [None]
  - JOINT SWELLING [None]
  - RENAL CELL CARCINOMA STAGE UNSPECIFIED [None]
